FAERS Safety Report 8581992 (Version 3)
Quarter: 2012Q4

REPORT INFORMATION
  Report Type: 
  Country: CA (occurrence: CA)
  Receive Date: 20120528
  Receipt Date: 20120903
  Transmission Date: 20130627
  Serious: Yes (Death, Hospitalization, Other)
  Sender: FDA-Public Use
  Company Number: PHHY2012CA009917

PATIENT
  Age: 60 Year
  Sex: Female

DRUGS (1)
  1. SANDOSTATIN LAR [Suspect]
     Indication: NEUROENDOCRINE TUMOUR
     Dosage: 30 mg, once a month
     Route: 030
     Dates: start: 20120130, end: 20120430

REACTIONS (14)
  - Death [Fatal]
  - Gastrointestinal anastomotic leak [Unknown]
  - Pneumonia aspiration [Unknown]
  - Lung disorder [Unknown]
  - Malignant neoplasm progression [Unknown]
  - Cardiac disorder [Unknown]
  - Liver disorder [Unknown]
  - Blood pressure increased [Unknown]
  - Muscular weakness [Unknown]
  - Hot flush [Unknown]
  - Hyperhidrosis [Unknown]
  - Cough [Unknown]
  - Choking [Unknown]
  - Blood glucose increased [Unknown]
